FAERS Safety Report 17281677 (Version 1)
Quarter: 2020Q1

REPORT INFORMATION
  Report Type: Spontaneous
  Country: US (occurrence: US)
  Receive Date: 20191227
  Receipt Date: 20191227
  Transmission Date: 20200409
  Serious: No
  Sender: FDA-Public Use
  Company Number: None

PATIENT
  Age: 64 Year
  Sex: Female

DRUGS (2)
  1. CAPECITABINE. [Suspect]
     Active Substance: CAPECITABINE
     Dates: start: 20191125
  2. CAPECITABINE. [Suspect]
     Active Substance: CAPECITABINE
     Indication: WHITE BLOOD CELL COUNT DECREASED
     Route: 048
     Dates: start: 20191125

REACTIONS (4)
  - Arthralgia [None]
  - Pain in extremity [None]
  - Musculoskeletal pain [None]
  - Insomnia [None]

NARRATIVE: CASE EVENT DATE: 20191201
